FAERS Safety Report 8557882-1 (Version None)
Quarter: 2012Q3

REPORT INFORMATION
  Report Type: 
  Country: None (occurrence: None)
  Receive Date: 20120801
  Receipt Date: 20120723
  Transmission Date: 20120928
  Serious: Yes (Hospitalization, Other)
  Sender: FDA-Public Use
  Company Number: DE-ASTRAZENECA-2012SE49626

PATIENT
  Age: 31436 Day
  Sex: Male

DRUGS (17)
  1. PANTOPRAZOLE [Concomitant]
     Indication: GASTRIC DISORDER
     Route: 048
     Dates: start: 20110926
  2. AMLODIPINE [Concomitant]
     Indication: HYPERTENSION
     Route: 048
     Dates: start: 20110526
  3. PENTAERYTHRITOL TETRANITRATE [Concomitant]
     Indication: ANGINA PECTORIS
     Route: 048
     Dates: end: 20120712
  4. BRILINTA [Suspect]
     Indication: CORONARY ARTERY DISEASE
     Route: 048
     Dates: start: 20110526, end: 20110529
  5. BRILINTA [Suspect]
     Route: 048
     Dates: start: 20120120, end: 20120709
  6. AMBROXOL [Concomitant]
     Indication: NASAL DECONGESTION THERAPY
     Route: 048
     Dates: start: 20120102, end: 20120116
  7. BRILINTA [Suspect]
     Route: 048
     Dates: start: 20110801, end: 20120102
  8. BRILINTA [Suspect]
     Route: 048
     Dates: start: 20120717
  9. PLACEBO [Suspect]
     Indication: CORONARY ARTERY DISEASE
     Route: 048
     Dates: start: 20120717
  10. RAMIPRIL [Concomitant]
     Indication: HYPERTENSION
     Route: 048
  11. BRILINTA [Suspect]
     Indication: ARTERIAL STENT INSERTION
     Route: 048
     Dates: start: 20110526, end: 20110529
  12. BRILINTA [Suspect]
     Route: 048
     Dates: start: 20110801, end: 20120102
  13. SIMVASTATIN [Concomitant]
     Indication: CORONARY ARTERY DISEASE
     Route: 048
  14. BRILINTA [Suspect]
     Route: 048
     Dates: start: 20120120, end: 20120709
  15. BRILINTA [Suspect]
     Route: 048
     Dates: start: 20120717
  16. PLACEBO [Suspect]
     Indication: ARTERIAL STENT INSERTION
     Route: 048
     Dates: start: 20120717
  17. ASPIRIN [Suspect]
     Route: 048

REACTIONS (2)
  - MALLORY-WEISS SYNDROME [None]
  - GASTRIC ULCER HAEMORRHAGE [None]
